FAERS Safety Report 7769674-1 (Version None)
Quarter: 2011Q3

REPORT INFORMATION
  Report Type: 
  Country: None (occurrence: None)
  Receive Date: 20110922
  Receipt Date: 20100908
  Transmission Date: 20111222
  Serious: No
  Sender: FDA-Public Use
  Company Number: US-ASTRAZENECA-2006UW07947

PATIENT
  Age: 25 Year
  Sex: Male
  Weight: 90.7 kg

DRUGS (12)
  1. SEROQUEL [Suspect]
     Indication: BIPOLAR DISORDER
     Dosage: 25MG - 300MG
     Route: 048
     Dates: start: 20040921
  2. SEROQUEL [Suspect]
     Dosage: 300-1100 MG
     Route: 048
     Dates: start: 20040901, end: 20060319
  3. HALDOL [Concomitant]
     Dates: start: 20061201
  4. SEROQUEL [Suspect]
     Route: 048
     Dates: start: 20060109, end: 20060123
  5. ABILIFY [Concomitant]
     Route: 048
     Dates: start: 20060801
  6. GEODON [Concomitant]
     Route: 048
     Dates: start: 20060701, end: 20061101
  7. RISPERDAL [Concomitant]
     Route: 048
     Dates: start: 20060801, end: 20060901
  8. METHADONE HCL [Concomitant]
     Dates: start: 20060101
  9. XANAX [Concomitant]
     Dates: start: 20040901
  10. ZOLOFT [Concomitant]
     Route: 048
     Dates: start: 20060701
  11. SEROQUEL [Suspect]
     Dosage: 150MG QAM, QPM, 600MG QHS
     Route: 048
     Dates: start: 20051128
  12. LEXAPRO [Concomitant]
     Dosage: 10MG -20MG
     Dates: start: 20040901

REACTIONS (6)
  - HYPERGLYCAEMIA [None]
  - HYPERLIPIDAEMIA [None]
  - TYPE 2 DIABETES MELLITUS [None]
  - ADVERSE REACTION [None]
  - BLOOD CHOLESTEROL INCREASED [None]
  - WEIGHT INCREASED [None]
